FAERS Safety Report 8361058-0 (Version None)
Quarter: 2012Q2

REPORT INFORMATION
  Report Type: 
  Country: None (occurrence: None)
  Receive Date: 20120515
  Receipt Date: 20120427
  Transmission Date: 20120825
  Serious: No
  Sender: FDA-Public Use
  Company Number: US-ASTRAZENECA-2011SE74452

PATIENT
  Age: 91 Year
  Sex: Female

DRUGS (3)
  1. ARTHRITIC MEDICATION [Interacting]
     Indication: ARTHRITIS
     Route: 065
  2. NEXIUM [Suspect]
     Indication: PEPTIC ULCER
     Route: 048
  3. NEXIUM [Interacting]
     Indication: GASTRIC ULCER
     Route: 048

REACTIONS (10)
  - ABDOMINAL PAIN [None]
  - DIARRHOEA [None]
  - OFF LABEL USE [None]
  - DRUG INTERACTION [None]
  - ABDOMINAL DISCOMFORT [None]
  - ULCER [None]
  - ACTIVITIES OF DAILY LIVING IMPAIRED [None]
  - ARTHRITIS [None]
  - ARTHROPATHY [None]
  - INTENTIONAL DRUG MISUSE [None]
